FAERS Safety Report 8772748 (Version 1)
Quarter: 2012Q4

REPORT INFORMATION
  Report Type: 
  Country: BE (occurrence: BE)
  Receive Date: 20120907
  Receipt Date: 20120907
  Transmission Date: 20130627
  Serious: Yes (Other)
  Sender: FDA-Public Use
  Company Number: BE-ROCHE-1114814

PATIENT
  Sex: Male
  Weight: 102 kg

DRUGS (15)
  1. MABTHERA [Suspect]
     Indication: PRODUCT USED FOR UNKNOWN INDICATION
     Route: 065
  2. BURINEX [Concomitant]
  3. LANOXIN [Concomitant]
  4. CELEBREX [Concomitant]
     Route: 065
     Dates: start: 2002
  5. EMCONCOR [Concomitant]
  6. PANTOMED [Concomitant]
  7. PLAVIX [Concomitant]
  8. ZYLORIC [Concomitant]
  9. MEDROL [Concomitant]
  10. ALDACTONE [Concomitant]
  11. CRESTOR [Concomitant]
  12. ZESTRIL [Concomitant]
  13. LANOXIN [Concomitant]
  14. METFORMAX [Concomitant]
  15. MARCOUMAR [Concomitant]

REACTIONS (4)
  - Drug-induced liver injury [Unknown]
  - Fibrosis [Unknown]
  - Renal failure acute [Unknown]
  - Abdominal pain upper [Unknown]
